FAERS Safety Report 9758476 (Version 1)
Quarter: 2013Q4

REPORT INFORMATION
  Report Type: Spontaneous
  Country: US (occurrence: None)
  Receive Date: 20131216
  Receipt Date: 20131216
  Transmission Date: 20140711
  Serious: No
  Sender: FDA-Public Use
  Company Number: CABO-13002376

PATIENT
  Age: 72 Year
  Sex: Male
  Weight: 67 kg

DRUGS (1)
  1. COMETRIQ [Suspect]
     Indication: MEDULLARY THYROID CANCER
     Dosage: 140 MG, QD, ORAL?120 MG, QD, ORAL?100 MG, QD, ORAL

REACTIONS (9)
  - Back pain [None]
  - Hyperhidrosis [None]
  - Confusional state [None]
  - Diarrhoea [None]
  - Dysgeusia [None]
  - Dehydration [None]
  - Hypertension [None]
  - Nail infection [None]
  - Weight decreased [None]
